FAERS Safety Report 10247477 (Version 1)
Quarter: 2014Q2

REPORT INFORMATION
  Report Type: Spontaneous
  Country: IN (occurrence: IN)
  Receive Date: 20140619
  Receipt Date: 20140619
  Transmission Date: 20141212
  Serious: Yes (Death, Hospitalization, Other)
  Sender: FDA-Public Use
  Company Number: IN-MERCK-1406IND005283

PATIENT
  Age: 56 Year
  Sex: Male

DRUGS (1)
  1. VIRAFERONPEG [Suspect]
     Indication: HEPATITIS C
     Dosage: 120 MG, QW
     Route: 058

REACTIONS (2)
  - Liver disorder [Fatal]
  - Coma [Fatal]
